FAERS Safety Report 7271552-1 (Version None)
Quarter: 2011Q1

REPORT INFORMATION
  Report Type: 
  Country: None (occurrence: None)
  Receive Date: 20110128
  Receipt Date: 20110128
  Transmission Date: 20110831
  Serious: Yes (Hospitalization)
  Sender: FDA-Public Use
  Company Number: None

PATIENT
  Sex: Female
  Weight: 83 kg

DRUGS (2)
  1. CARBOPLATIN [Suspect]
     Dosage: 875 MG
     Dates: start: 20101216
  2. TAXOL [Suspect]
     Dosage: 450 MG
     Dates: start: 20101229

REACTIONS (5)
  - NEUROPATHY PERIPHERAL [None]
  - PNEUMONIA [None]
  - MUSCULOSKELETAL CHEST PAIN [None]
  - COUGH [None]
  - DYSPNOEA [None]
